FAERS Safety Report 6994178-3 (Version None)
Quarter: 2010Q3

REPORT INFORMATION
  Report Type: 
  Country: None (occurrence: None)
  Receive Date: 20100917
  Receipt Date: 20100309
  Transmission Date: 20110219
  Serious: Yes (Hospitalization, Other)
  Sender: FDA-Public Use
  Company Number: US-ASTRAZENECA-2007UW17001

PATIENT
  Age: 15166 Day
  Sex: Female
  Weight: 63.5 kg

DRUGS (11)
  1. SEROQUEL [Suspect]
     Indication: SCHIZOPHRENIA
     Route: 048
     Dates: start: 20040224, end: 20040315
  2. SEROQUEL [Suspect]
     Indication: INSOMNIA
     Route: 048
     Dates: start: 20040224, end: 20040315
  3. SEROQUEL [Suspect]
     Route: 048
     Dates: start: 20040312
  4. SEROQUEL [Suspect]
     Route: 048
     Dates: start: 20040312
  5. HALDOL [Concomitant]
     Route: 048
     Dates: start: 20070321
  6. ZYPREXA [Concomitant]
     Route: 048
     Dates: start: 20010321
  7. EFFEXOR [Concomitant]
     Dates: start: 20040312
  8. PAXIL CR [Concomitant]
     Dosage: 12.5 MG TO 25 MG
     Dates: start: 20040312
  9. BUSPIRONE HYDROCHLORIDE [Concomitant]
     Dates: start: 20040312
  10. PREVACID [Concomitant]
     Dates: start: 20030312
  11. GEODON [Concomitant]
     Dosage: 40MG TO 80MG
     Dates: start: 20040312

REACTIONS (4)
  - HALLUCINATION [None]
  - PANCREATITIS [None]
  - PANCREATITIS ACUTE [None]
  - TOOTH EXTRACTION [None]
